FAERS Safety Report 5212302-X (Version None)
Quarter: 2007Q1

REPORT INFORMATION
  Report Type: 
  Country: None (occurrence: None)
  Receive Date: 20070118
  Receipt Date: 20070112
  Transmission Date: 20070707
  Serious: Yes (Hospitalization)
  Sender: FDA-Public Use
  Company Number: BE-ABBOTT-07P-013-0355690-00

PATIENT
  Sex: Female

DRUGS (1)
  1. KALETRA [Suspect]
     Indication: HIV INFECTION

REACTIONS (5)
  - DIARRHOEA [None]
  - GASTROINTESTINAL DISORDER [None]
  - MALAISE [None]
  - PAIN IN EXTREMITY [None]
  - POLYNEUROPATHY [None]
